FAERS Safety Report 9925040 (Version 1)
Quarter: 2014Q1

REPORT INFORMATION
  Report Type: Spontaneous
  Country: US (occurrence: None)
  Receive Date: 20140225
  Receipt Date: 20140225
  Transmission Date: 20141002
  Serious: Yes (Other)
  Sender: FDA-Public Use
  Company Number: None

PATIENT
  Sex: 0

DRUGS (2)
  1. AVELOX [Suspect]
  2. LEVOFLOXACIN [Suspect]

REACTIONS (4)
  - Rash [None]
  - Lymphadenopathy [None]
  - Tendon disorder [None]
  - Muscle disorder [None]
